FAERS Safety Report 12715964 (Version 1)
Quarter: 2016Q3

REPORT INFORMATION
  Report Type: Spontaneous
  Country: US (occurrence: US)
  Receive Date: 20160906
  Receipt Date: 20160906
  Transmission Date: 20161109
  Serious: No
  Sender: FDA-Public Use
  Company Number: US-BAYER-2016-171599

PATIENT
  Age: 11 Year
  Sex: Female

DRUGS (1)
  1. CHILDREN CLARITIN ALLERGY [Suspect]
     Active Substance: LORATADINE
     Dosage: UNK
     Dates: start: 20160826, end: 20160826

REACTIONS (2)
  - Expired product administered [None]
  - Nausea [None]

NARRATIVE: CASE EVENT DATE: 20160826
